FAERS Safety Report 25100880 (Version 1)
Quarter: 2025Q1

REPORT INFORMATION
  Report Type: Spontaneous
  Country: FR (occurrence: FR)
  Receive Date: 20250320
  Receipt Date: 20250320
  Transmission Date: 20250408
  Serious: Yes (Death)
  Sender: AMGEN
  Company Number: FR-AMGEN-FRASP2025051678

PATIENT
  Age: 74 Year
  Sex: Female
  Weight: 45 kg

DRUGS (8)
  1. XGEVA [Suspect]
     Active Substance: DENOSUMAB
     Indication: Prophylaxis
     Dosage: 120 MILLIGRAM, Q2MO (1 DOSAGE FORM)
     Route: 058
  2. CAPECITABINE [Suspect]
     Active Substance: CAPECITABINE
     Indication: Breast cancer
     Dosage: 30 GRAM, QMO
     Route: 048
     Dates: start: 20241111, end: 20250112
  3. CAPECITABINE [Suspect]
     Active Substance: CAPECITABINE
     Dosage: 34.5 GRAM, QMO
     Route: 048
     Dates: start: 20250113, end: 20250224
  4. VESICARE [Suspect]
     Active Substance: SOLIFENACIN SUCCINATE
     Indication: Urinary tract disorder
     Dosage: 1 DOSAGE FORM, QD
     Route: 048
     Dates: start: 20250218, end: 20250224
  5. BACTRIM [Concomitant]
     Active Substance: SULFAMETHOXAZOLE\TRIMETHOPRIM
     Dosage: 2 DOSAGE FORM, QD
     Route: 048
     Dates: start: 20250205, end: 20250220
  6. FULVESTRANT [Concomitant]
     Active Substance: FULVESTRANT
     Dosage: 500 MILLIGRAM, Q2WK
     Route: 030
     Dates: start: 20220906, end: 20221010
  7. FULVESTRANT [Concomitant]
     Active Substance: FULVESTRANT
     Dosage: 500 MILLIGRAM, Q4WK
     Route: 030
     Dates: start: 20221020, end: 202411
  8. EVEROLIMUS [Concomitant]
     Active Substance: EVEROLIMUS
     Dosage: 5 MILLIGRAM, QD
     Route: 048
     Dates: start: 20220906, end: 202409

REACTIONS (1)
  - Ischaemic stroke [Fatal]

NARRATIVE: CASE EVENT DATE: 20250224
